FAERS Safety Report 5710516-3 (Version None)
Quarter: 2008Q2

REPORT INFORMATION
  Report Type: 
  Country: None (occurrence: None)
  Receive Date: 20080415
  Receipt Date: 20080402
  Transmission Date: 20081010
  Serious: Yes (Hospitalization)
  Sender: FDA-Public Use
  Company Number: 2008029374

PATIENT
  Sex: Female

DRUGS (1)
  1. FRAGMIN [Suspect]
     Dosage: PARENTERAL
     Route: 051
     Dates: start: 20080101, end: 20080201

REACTIONS (1)
  - PULMONARY EMBOLISM [None]
